FAERS Safety Report 18357021 (Version 1)
Quarter: 2020Q4

REPORT INFORMATION
  Report Type: Spontaneous
  Country: US (occurrence: US)
  Receive Date: 20201007
  Receipt Date: 20201007
  Transmission Date: 20210114
  Serious: Yes (Hospitalization, Other)
  Sender: FDA-Public Use
  Company Number: US-PURDUE-USA-2020-0164437

PATIENT
  Age: 41 Year
  Sex: Female

DRUGS (9)
  1. FOLIC ACID. [Concomitant]
     Active Substance: FOLIC ACID
     Indication: PRODUCT USED FOR UNKNOWN INDICATION
     Dosage: 1 MG, DAILY
     Route: 048
  2. METHOCARBAMOL. [Concomitant]
     Active Substance: METHOCARBAMOL
     Indication: PRODUCT USED FOR UNKNOWN INDICATION
     Dosage: 750 MG, Q6H PRN
     Route: 048
  3. HYDROXYZINE PAMOATE. [Concomitant]
     Active Substance: HYDROXYZINE PAMOATE
     Indication: PRODUCT USED FOR UNKNOWN INDICATION
     Dosage: 25 MG, Q6H PRN
     Route: 048
  4. HYDROCODONE BITARTRATE (SIMILAR TO NDA 206627) [Suspect]
     Active Substance: HYDROCODONE BITARTRATE
     Indication: PAIN
  5. THERAPEUTIC M [Concomitant]
     Indication: PRODUCT USED FOR UNKNOWN INDICATION
     Dosage: 1 TABLET, DAILY
     Route: 048
  6. ROXICODONE [Suspect]
     Active Substance: OXYCODONE HYDROCHLORIDE
     Indication: SJOGREN^S SYNDROME
     Dosage: 6 UNK, DAILY
     Route: 065
     Dates: start: 2015
  7. HYDROCODONE BITARTRATE (SIMILAR TO NDA 206627) [Suspect]
     Active Substance: HYDROCODONE BITARTRATE
     Indication: SJOGREN^S SYNDROME
     Dosage: 10 UNK, UNK
     Route: 048
     Dates: start: 2015
  8. ROXICODONE [Suspect]
     Active Substance: OXYCODONE HYDROCHLORIDE
     Indication: PAIN
  9. VITAMIN B1 [Concomitant]
     Active Substance: THIAMINE HYDROCHLORIDE
     Indication: PRODUCT USED FOR UNKNOWN INDICATION
     Dosage: 100 MG, DAILY
     Route: 048

REACTIONS (27)
  - Drug dependence [Unknown]
  - Neoplasm [Unknown]
  - Withdrawal syndrome [Unknown]
  - Fall [Unknown]
  - Diarrhoea [Unknown]
  - Drug abuse [Recovered/Resolved]
  - Restless legs syndrome [Unknown]
  - Decreased appetite [Unknown]
  - Urinary tract infection [Unknown]
  - Cough [Recovered/Resolved]
  - Hypertension [Unknown]
  - Chills [Unknown]
  - Joint swelling [Unknown]
  - Fibromyalgia [Unknown]
  - Illness [Unknown]
  - Cyst removal [Unknown]
  - Back pain [Unknown]
  - Myalgia [Unknown]
  - Limb reconstructive surgery [Unknown]
  - Tumour excision [Unknown]
  - Urachal abnormality [Unknown]
  - Night sweats [Unknown]
  - Palpitations [Unknown]
  - Stress [Unknown]
  - Depression [Unknown]
  - Mitral valve prolapse [Unknown]
  - Anxiety [Unknown]

NARRATIVE: CASE EVENT DATE: 20150901
